FAERS Safety Report 12709698 (Version 1)
Quarter: 2016Q3

REPORT INFORMATION
  Report Type: Spontaneous
  Country: CN (occurrence: CN)
  Receive Date: 20160902
  Receipt Date: 20160902
  Transmission Date: 20161109
  Serious: Yes (Hospitalization)
  Sender: FDA-Public Use
  Company Number: CN-009507513-1608CHN014773

PATIENT
  Age: 49 Year
  Sex: Male
  Weight: 55 kg

DRUGS (2)
  1. TIENAM [Suspect]
     Active Substance: CILASTATIN SODIUM\IMIPENEM
     Indication: BACTERIAL INFECTION
     Dosage: 1 G, BID
     Route: 041
     Dates: start: 20160401, end: 20160405
  2. NIKETHAMIDE [Suspect]
     Active Substance: NIKETHAMIDE
     Dosage: DOSE: 1.125 GRAMS
     Route: 041
     Dates: start: 20160401, end: 20160406

REACTIONS (1)
  - Epilepsy [Recovering/Resolving]

NARRATIVE: CASE EVENT DATE: 20160405
